FAERS Safety Report 8559343-2 (Version None)
Quarter: 2012Q3

REPORT INFORMATION
  Report Type: 
  Country: None (occurrence: None)
  Receive Date: 20120720
  Receipt Date: 20120703
  Transmission Date: 20120928
  Serious: Yes (Death, Hospitalization)
  Sender: FDA-Public Use
  Company Number: 0510006

PATIENT
  Age: 2 Year
  Sex: Female

DRUGS (1)
  1. ORFADIN [Suspect]
     Indication: TYROSINAEMIA
     Dosage: 14 MG ORAL
     Route: 048
     Dates: start: 20030227, end: 20040607

REACTIONS (2)
  - PULMONARY HAEMORRHAGE [None]
  - LIVER TRANSPLANT [None]
